FAERS Safety Report 8598267-1 (Version None)
Quarter: 2012Q3

REPORT INFORMATION
  Report Type: 
  Country: None (occurrence: None)
  Receive Date: 20120816
  Receipt Date: 20120807
  Transmission Date: 20120928
  Serious: Yes (Other)
  Sender: FDA-Public Use
  Company Number: US-ASTRAZENECA-2012SE55611

PATIENT
  Sex: Male

DRUGS (2)
  1. TRILIPIX [Concomitant]
  2. CRESTOR [Suspect]
     Route: 048

REACTIONS (1)
  - PANCREATITIS RELAPSING [None]
